FAERS Safety Report 7645564-X (Version None)
Quarter: 2011Q3

REPORT INFORMATION
  Report Type: 
  Country: None (occurrence: None)
  Receive Date: 20110729
  Receipt Date: 20110725
  Transmission Date: 20111222
  Serious: Yes (Other)
  Sender: FDA-Public Use
  Company Number: JP-ROCHE-792294

PATIENT

DRUGS (7)
  1. EVEROLIMUS [Suspect]
     Dosage: DOSE LEVELS 1, 1A AND 2. DAY 1-DAY 21
     Route: 065
  2. CAPECITABINE [Suspect]
     Indication: METASTATIC GASTRIC CANCER
     Dosage: DOSE LEVEL -1 AND 1. DAYS 1-14.
     Route: 065
  3. CAPECITABINE [Suspect]
     Dosage: DOSE LEVEL 2. DAYS 1-14.
     Route: 065
  4. EVEROLIMUS [Suspect]
     Indication: METASTATIC GASTRIC CANCER
     Dosage: DOSE LEVEL -1. DAY 1-DAY 21
     Route: 065
  5. EVEROLIMUS [Suspect]
     Dosage: DE-ESCALATION TO DOSE LEVEL 1 A SINCE DOSE LEVEL 2 WAS INTOLERABLE.
     Route: 065
  6. CAPECITABINE [Suspect]
     Dosage: DOSE LEVEL 1A. DAYS 1-14.
     Route: 065
  7. CAPECITABINE [Suspect]
     Dosage: DE-ESCALATION TO DOSE LEVEL 1 A SINCE DOSE LEVEL 2 WAS INTOLERABLE.
     Route: 065

REACTIONS (8)
  - MUCOSAL INFLAMMATION [None]
  - TRANSAMINASES INCREASED [None]
  - NECROTISING FASCIITIS [None]
  - HYPERGLYCAEMIA [None]
  - HYPONATRAEMIA [None]
  - THROMBOCYTOPENIA [None]
  - HYPOPHOSPHATAEMIA [None]
  - DYSPEPSIA [None]
